FAERS Safety Report 7425411-1 (Version None)
Quarter: 2011Q2

REPORT INFORMATION
  Report Type: 
  Country: None (occurrence: None)
  Receive Date: 20110420
  Receipt Date: 20110412
  Transmission Date: 20111010
  Serious: Yes (Hospitalization)
  Sender: FDA-Public Use
  Company Number: US-US-EMD SERONO, INC.-234457K09USA

PATIENT
  Sex: Female

DRUGS (9)
  1. REBIF [Suspect]
     Indication: MULTIPLE SCLEROSIS
     Route: 058
     Dates: start: 20060310
  2. REBIF [Suspect]
     Route: 058
  3. HORMONES [Concomitant]
     Indication: HOT FLUSH
     Route: 065
  4. SOLU-MEDROL [Suspect]
  5. DOMPERIDONE [Concomitant]
     Indication: DUODENITIS
  6. PRILOSEC [Concomitant]
     Indication: GASTRITIS
     Route: 065
  7. PRILOSEC [Concomitant]
     Indication: DUODENITIS
  8. DOMPERIDONE [Concomitant]
     Indication: GASTRITIS
     Route: 065
  9. INSULIN [Concomitant]
     Indication: BLOOD GLUCOSE INCREASED
     Route: 065

REACTIONS (4)
  - PANCREATITIS [None]
  - BLOOD GLUCOSE INCREASED [None]
  - MULTIPLE SCLEROSIS RELAPSE [None]
  - BLOOD COUNT ABNORMAL [None]
